FAERS Safety Report 5176770-4 (Version None)
Quarter: 2006Q4

REPORT INFORMATION
  Report Type: 
  Country: None (occurrence: None)
  Receive Date: 20061207
  Receipt Date: 20061121
  Transmission Date: 20070319
  Serious: Yes (Hospitalization, Disabling)
  Sender: FDA-Public Use
  Company Number: 430011N06USA

PATIENT
  Age: 55 Year
  Sex: Female
  Weight: 57 kg

DRUGS (11)
  1. NOVANTRONE [Suspect]
     Dosage: SEE IMAGE
     Route: 042
     Dates: start: 20020403, end: 20020403
  2. NOVANTRONE [Suspect]
     Dosage: SEE IMAGE
     Route: 042
     Dates: start: 20020701, end: 20020701
  3. NOVANTRONE [Suspect]
     Dosage: SEE IMAGE
     Route: 042
     Dates: start: 20020927, end: 20020927
  4. NOVANTRONE [Suspect]
     Dosage: SEE IMAGE
     Route: 042
     Dates: start: 20021218, end: 20021218
  5. NOVANTRONE [Suspect]
     Dosage: SEE IMAGE
     Route: 042
     Dates: start: 20030319, end: 20030319
  6. NOVANTRONE [Suspect]
     Dosage: SEE IMAGE
     Route: 042
     Dates: start: 20030625, end: 20030625
  7. INTERFERON BETA [Concomitant]
  8. METOPROLOL SUCCINATE [Concomitant]
  9. LISINOPRIL [Concomitant]
  10. METHOTREXATE [Concomitant]
  11. METHYLPREDNISOLONE [Concomitant]

REACTIONS (10)
  - BUNDLE BRANCH BLOCK [None]
  - CARDIOMYOPATHY [None]
  - DEEP VEIN THROMBOSIS [None]
  - DILATATION ATRIAL [None]
  - DILATATION VENTRICULAR [None]
  - MITRAL VALVE INCOMPETENCE [None]
  - PULMONARY EMBOLISM [None]
  - TRICUSPID VALVE INCOMPETENCE [None]
  - VENTRICULAR DYSFUNCTION [None]
  - VIRAL INFECTION [None]
